FAERS Safety Report 6386409-8 (Version None)
Quarter: 2009Q3

REPORT INFORMATION
  Report Type: 
  Country: None (occurrence: None)
  Receive Date: 20090930
  Receipt Date: 20090930
  Transmission Date: 20100115
  Serious: Yes (Other)
  Sender: FDA-Public Use
  Company Number: None

PATIENT
  Age: 34 Year
  Sex: Female
  Weight: 58.0604 kg

DRUGS (2)
  1. BUPROPION HCL [Suspect]
     Indication: DEPRESSION
     Dosage: 150MG QD PO
     Route: 048
     Dates: start: 20090101, end: 20090430
  2. BUPROPION HCL [Suspect]
     Indication: DEPRESSION
     Dosage: 150MG QD PO
     Route: 048
     Dates: start: 20090903, end: 20090928

REACTIONS (12)
  - AGITATION [None]
  - ANXIETY [None]
  - CONSTIPATION [None]
  - DEPRESSION [None]
  - EYELID OEDEMA [None]
  - INSOMNIA [None]
  - MOOD ALTERED [None]
  - NIGHT SWEATS [None]
  - PERSONALITY CHANGE [None]
  - PRODUCT SUBSTITUTION ISSUE [None]
  - URTICARIA [None]
  - WEIGHT INCREASED [None]
